FAERS Safety Report 10162143 (Version 1)
Quarter: 2014Q2

REPORT INFORMATION
  Report Type: Spontaneous
  Country: US (occurrence: None)
  Receive Date: 20140507
  Receipt Date: 20140507
  Transmission Date: 20141212
  Serious: Yes (Other)
  Sender: FDA-Public Use
  Company Number: 20140254

PATIENT
  Age: 58 Year
  Sex: Female

DRUGS (1)
  1. VENOFER [Suspect]
     Indication: HIP ARTHROPLASTY
     Dosage: 300 MG IN 250 ML NS
     Route: 042
     Dates: start: 20140418, end: 20140418

REACTIONS (9)
  - Erythema [None]
  - Off label use [None]
  - Injection site erythema [None]
  - Unresponsive to stimuli [None]
  - Vomiting [None]
  - Skin burning sensation [None]
  - Oedema peripheral [None]
  - Dyspnoea [None]
  - Memory impairment [None]
